FAERS Safety Report 5125232-9 (Version None)
Quarter: 2006Q4

REPORT INFORMATION
  Report Type: 
  Country: None (occurrence: None)
  Receive Date: 20061011
  Receipt Date: 20061005
  Transmission Date: 20070319
  Serious: Yes (Other)
  Sender: FDA-Public Use
  Company Number: ES-ROXANE LABORATORIES, INC-2006-DE-05265GD

PATIENT
  Age: 52 Year
  Sex: Female

DRUGS (3)
  1. PREDNISONE TAB [Suspect]
     Indication: ASTHMA
     Route: 048
  2. METHYLPREDNISOLONE [Suspect]
     Indication: ASTHMA
     Route: 048
  3. DEFLAZACORT [Suspect]
     Indication: ASTHMA
     Route: 048

REACTIONS (5)
  - CUSHINGOID [None]
  - GLAUCOMA [None]
  - HYPERGLYCAEMIA [None]
  - OSTEOPOROSIS [None]
  - WEIGHT INCREASED [None]
